FAERS Safety Report 8520215-0 (Version None)
Quarter: 2012Q3

REPORT INFORMATION
  Report Type: 
  Country: None (occurrence: None)
  Receive Date: 20120709
  Receipt Date: 20110801
  Transmission Date: 20120928
  Serious: Yes (Other)
  Sender: FDA-Public Use
  Company Number: 998443

PATIENT
  Age: 70 Year
  Sex: Female
  Weight: 71.6683 kg

DRUGS (1)
  1. CIPRO [Suspect]
     Indication: INTRAOPERATIVE CARE
     Dosage: 400 MG, X1, INTRAVENOUS DRIP
     Route: 041

REACTIONS (2)
  - INJECTION SITE PRURITUS [None]
  - INJECTION SITE STREAKING [None]
